FAERS Safety Report 25684078 (Version 1)
Quarter: 2025Q3

REPORT INFORMATION
  Report Type: Spontaneous
  Country: CA (occurrence: CA)
  Receive Date: 20250815
  Receipt Date: 20250815
  Transmission Date: 20251021
  Serious: Yes (Other)
  Sender: JOHNSON AND JOHNSON
  Company Number: CA-JNJFOC-20250808465

PATIENT
  Age: 66 Year
  Sex: Male

DRUGS (12)
  1. DARZALEX [Suspect]
     Active Substance: DARATUMUMAB
     Indication: Plasma cell myeloma
     Route: 042
  2. LANREOTIDE ACETATE [Suspect]
     Active Substance: LANREOTIDE ACETATE
     Indication: Gastroenteropancreatic neuroendocrine tumour disease
     Route: 058
  3. LANREOTIDE ACETATE [Suspect]
     Active Substance: LANREOTIDE ACETATE
     Indication: Carcinoid syndrome
  4. CYANOCOBALAMIN [Concomitant]
     Active Substance: CYANOCOBALAMIN
     Indication: Product used for unknown indication
  5. DEXAMETHASONE [Concomitant]
     Active Substance: DEXAMETHASONE
     Indication: Product used for unknown indication
  6. HYDROCHLOROTHIAZIDE [Concomitant]
     Active Substance: HYDROCHLOROTHIAZIDE
     Indication: Product used for unknown indication
  7. PREGABALIN [Concomitant]
     Active Substance: PREGABALIN
     Indication: Product used for unknown indication
  8. ROSUVASTATIN [Concomitant]
     Active Substance: ROSUVASTATIN
     Indication: Product used for unknown indication
     Route: 058
  9. SULFAMETHOXAZOLE\TRIMETHOPRIM [Concomitant]
     Active Substance: SULFAMETHOXAZOLE\TRIMETHOPRIM
     Indication: Product used for unknown indication
  10. TELMISARTAN [Concomitant]
     Active Substance: TELMISARTAN
     Indication: Product used for unknown indication
  11. VALACYCLOVIR [Concomitant]
     Active Substance: VALACYCLOVIR HYDROCHLORIDE
     Indication: Product used for unknown indication
  12. CHOLECALCIFEROL [Concomitant]
     Active Substance: CHOLECALCIFEROL
     Indication: Product used for unknown indication

REACTIONS (20)
  - Abdominal distension [Not Recovered/Not Resolved]
  - Abdominal pain [Not Recovered/Not Resolved]
  - Abdominal pain upper [Not Recovered/Not Resolved]
  - Affect lability [Not Recovered/Not Resolved]
  - Anxiety [Not Recovered/Not Resolved]
  - Blood potassium decreased [Not Recovered/Not Resolved]
  - Chills [Not Recovered/Not Resolved]
  - Fatigue [Not Recovered/Not Resolved]
  - Flatulence [Not Recovered/Not Resolved]
  - Hypertension [Not Recovered/Not Resolved]
  - Inappropriate schedule of product administration [Not Recovered/Not Resolved]
  - Injection site discomfort [Not Recovered/Not Resolved]
  - Injection site haemorrhage [Not Recovered/Not Resolved]
  - Injection site pain [Not Recovered/Not Resolved]
  - Musculoskeletal stiffness [Not Recovered/Not Resolved]
  - Paraesthesia [Not Recovered/Not Resolved]
  - Post procedural diarrhoea [Not Recovered/Not Resolved]
  - Procedural complication [Not Recovered/Not Resolved]
  - Procedural pain [Not Recovered/Not Resolved]
  - Tinnitus [Not Recovered/Not Resolved]
